FAERS Safety Report 14599279 (Version 2)
Quarter: 2018Q1

REPORT INFORMATION
  Report Type: Report from Study
  Country: JP (occurrence: JP)
  Receive Date: 20180305
  Receipt Date: 20180313
  Transmission Date: 20180509
  Serious: Yes (Other)
  Sender: FDA-Public Use
  Company Number: JP-TEVA-2018-JP-863988

PATIENT
  Age: 87 Year
  Sex: Male

DRUGS (2)
  1. PREDNISOLONE. [Suspect]
     Active Substance: PREDNISOLONE
     Indication: PEMPHIGOID
     Dosage: 60 MILLIGRAM DAILY;
     Route: 048
  2. DIAPHENYLSULFONE [Concomitant]
     Indication: PEMPHIGOID
     Dosage: 75 MILLIGRAM DAILY;
     Route: 048

REACTIONS (6)
  - Gastrointestinal haemorrhage [Recovered/Resolved]
  - Cytomegalovirus duodenitis [Recovering/Resolving]
  - Cytomegalovirus infection [Recovered/Resolved]
  - Hepatic function abnormal [Recovering/Resolving]
  - Cytomegalovirus gastroenteritis [Recovering/Resolving]
  - Acute kidney injury [Unknown]
